FAERS Safety Report 23776791 (Version 1)
Quarter: 2024Q2

REPORT INFORMATION
  Report Type: Spontaneous
  Country: US (occurrence: US)
  Receive Date: 20240424
  Receipt Date: 20240424
  Transmission Date: 20240715
  Serious: No
  Sender: FDA-Public Use
  Company Number: US-AMGEN-USASP2024076391

PATIENT

DRUGS (1)
  1. BLINCYTO [Suspect]
     Active Substance: BLINATUMOMAB
     Indication: Product used for unknown indication
     Dosage: UNK (1 BLINCYTO FOR 2 BAGSAND THE DOSES ARE FOR THE 9 MCGS AND THE KIT COMES WITH THE 35MCGS)
     Route: 065

REACTIONS (1)
  - Product preparation issue [Unknown]
